FAERS Safety Report 22111824 (Version 1)
Quarter: 2023Q1

REPORT INFORMATION
  Report Type: Spontaneous
  Country: US (occurrence: US)
  Receive Date: 20230318
  Receipt Date: 20230318
  Transmission Date: 20230418
  Serious: Yes (Disabling)
  Sender: FDA-Public Use
  Company Number: US-TEVA-2023-US-2867792

PATIENT
  Age: 57 Year
  Sex: Female
  Weight: 62.41 kg

DRUGS (10)
  1. DOCETAXEL [Suspect]
     Active Substance: DOCETAXEL
     Indication: Breast cancer female
     Dosage: 6 CYCLES, EVERY 3 WEEKS, 05-MAY-2016, 02-JUN-2016, 23-JUN-2016, 20-JUL-2016,10-AUG-2016, 06-SEP-2016
     Route: 042
     Dates: start: 20160505, end: 20160906
  2. DOCETAXEL [Suspect]
     Active Substance: DOCETAXEL
     Indication: Breast cancer female
     Dosage: 6 CYCLES, EVERY 3 WEEKS, 05-MAY-2016, 02-JUN-2016, 23-JUN-2016, 20-JUL-2016,10-AUG-2016, 06-SEP-2016
     Route: 042
     Dates: start: 20160505, end: 20160906
  3. HERCEPTIN [Suspect]
     Active Substance: TRASTUZUMAB
     Indication: Breast cancer female
     Dosage: 6 CYCLES EVERY 3 WEEKS, 05-MAY-2016 568 MG, 02-JUN-2016 426MG, 23-JUN-2016 426MG, 20-JUL-2016 426MG,
     Route: 042
     Dates: start: 20160505, end: 20160906
  4. PERJETA [Suspect]
     Active Substance: PERTUZUMAB
     Indication: Breast cancer female
     Dosage: 6 CYCLES EVERY 3 WEEKS, 05-MAY-2016 840 MG, 02-JUN-2016 420MG, 23-JUN-2016 420MG, 20-JUL-2016 420MG,
     Route: 042
     Dates: start: 20160505, end: 20160906
  5. BENADRYL [Concomitant]
     Active Substance: DIPHENHYDRAMINE HYDROCHLORIDE
     Indication: Product used for unknown indication
     Route: 042
     Dates: start: 20160505, end: 20160906
  6. PEPCID [Concomitant]
     Active Substance: FAMOTIDINE
     Indication: Product used for unknown indication
     Route: 065
     Dates: start: 20160505, end: 20160906
  7. ZANTAC [Concomitant]
     Active Substance: RANITIDINE HYDROCHLORIDE
     Indication: Product used for unknown indication
     Route: 042
     Dates: start: 20160505, end: 20160906
  8. ALOXI [Concomitant]
     Active Substance: PALONOSETRON HYDROCHLORIDE
     Indication: Product used for unknown indication
     Route: 042
     Dates: start: 20160505, end: 20160906
  9. DECADRON [Concomitant]
     Active Substance: DEXAMETHASONE
     Indication: Product used for unknown indication
     Route: 042
     Dates: start: 20160505, end: 20160906
  10. TYLENOL [Concomitant]
     Active Substance: ACETAMINOPHEN
     Indication: Product used for unknown indication
     Route: 048
     Dates: start: 20160505, end: 20160810

REACTIONS (5)
  - Alopecia totalis [Not Recovered/Not Resolved]
  - Alopecia areata [Not Recovered/Not Resolved]
  - Madarosis [Not Recovered/Not Resolved]
  - Hair texture abnormal [Not Recovered/Not Resolved]
  - Hair colour changes [Not Recovered/Not Resolved]

NARRATIVE: CASE EVENT DATE: 20161201
